FAERS Safety Report 8012771-6 (Version None)
Quarter: 2011Q4

REPORT INFORMATION
  Report Type: 
  Country: None (occurrence: None)
  Receive Date: 20111229
  Receipt Date: 20111216
  Transmission Date: 20120403
  Serious: Yes (Other)
  Sender: FDA-Public Use
  Company Number: US-AMGEN-USASP2011067811

PATIENT
  Age: 75 Year
  Sex: Female

DRUGS (1)
  1. PROLIA [Suspect]
     Indication: BONE LOSS
     Dates: start: 20111216, end: 20111216

REACTIONS (3)
  - WHEEZING [None]
  - DYSPNOEA [None]
  - ANAPHYLACTIC REACTION [None]
